FAERS Safety Report 10082586 (Version 1)
Quarter: 2014Q2

REPORT INFORMATION
  Report Type: Spontaneous
  Country: FR (occurrence: FR)
  Receive Date: 20140416
  Receipt Date: 20140416
  Transmission Date: 20141212
  Serious: Yes (Other)
  Sender: FDA-Public Use
  Company Number: PHHY2014FR044026

PATIENT
  Age: 82 Year
  Sex: Female

DRUGS (10)
  1. SOTALOL SANDOZ [Suspect]
     Dosage: 0.5 DF, ONCE/SINGLE
     Route: 048
     Dates: start: 20110612, end: 20110612
  2. CO-RENITEC [Suspect]
     Dosage: 1 DF, ONCE/SINGLE
     Route: 048
     Dates: start: 20110612, end: 20110612
  3. NIDREL [Suspect]
     Indication: HYPERTENSION
     Dosage: 1 DF, QD
     Route: 048
     Dates: start: 20110612
  4. TRIATEC [Suspect]
     Indication: HYPERTENSION
     Dosage: 1 DF, QD
     Route: 048
     Dates: start: 20110612
  5. EUPRESSYL [Suspect]
     Dosage: 1 DF, ONCE/SINGLE
     Route: 048
     Dates: start: 20110612, end: 20110612
  6. PRAVASTATIN [Concomitant]
     Route: 065
  7. ALLOPURINOL [Concomitant]
     Route: 065
  8. DIFFU K [Concomitant]
  9. TANAKAN [Concomitant]
     Dates: start: 20110612, end: 20110612
  10. PERMIXON [Concomitant]
     Dates: start: 20110612, end: 20110612

REACTIONS (3)
  - Medication error [Recovered/Resolved]
  - Wrong patient received medication [Recovered/Resolved]
  - Hypotension [Recovered/Resolved]
